FAERS Safety Report 8571314-9 (Version None)
Quarter: 2012Q3

REPORT INFORMATION
  Report Type: 
  Country: None (occurrence: None)
  Receive Date: 20120806
  Receipt Date: 20120725
  Transmission Date: 20120928
  Serious: Yes (Hospitalization)
  Sender: FDA-Public Use
  Company Number: US-BAYER-201020942NA

PATIENT
  Age: 28 Year
  Sex: Female
  Weight: 70.295 kg

DRUGS (6)
  1. NAPROXEN (ALEVE) [Concomitant]
  2. IBUPROFEN (ADVIL) [Concomitant]
  3. NSAID'S [Concomitant]
  4. LIDOCAINE W/PRILOCAINE [Concomitant]
     Dosage: UNK
  5. YASMIN [Suspect]
     Indication: CONTRACEPTION
     Dosage: UNK
     Route: 048
     Dates: start: 20041117, end: 20060621
  6. CONTRACEPTIVES NOS [Concomitant]

REACTIONS (2)
  - DEEP VEIN THROMBOSIS [None]
  - PAIN IN EXTREMITY [None]
